FAERS Safety Report 25487738 (Version 2)
Quarter: 2025Q3

REPORT INFORMATION
  Report Type: Report from Study
  Country: CA (occurrence: CA)
  Receive Date: 20250627
  Receipt Date: 20250826
  Transmission Date: 20251020
  Serious: Yes (Other)
  Sender: TAKEDA
  Company Number: CA-TAKEDA-2025TUS058130

PATIENT
  Sex: Male

DRUGS (10)
  1. VEDOLIZUMAB [Suspect]
     Active Substance: VEDOLIZUMAB
     Indication: Colitis ulcerative
  2. VEDOLIZUMAB [Suspect]
     Active Substance: VEDOLIZUMAB
  3. BUDESONIDE [Concomitant]
     Active Substance: BUDESONIDE
  4. IRON [Concomitant]
     Active Substance: IRON
     Indication: Supplementation therapy
  5. TAMSULOSIN [Concomitant]
     Active Substance: TAMSULOSIN
  6. RANITIDINE [Concomitant]
     Active Substance: RANITIDINE
  7. ASPIRIN [Concomitant]
     Active Substance: ASPIRIN
  8. B12 [Concomitant]
  9. NICOTINIC ACID [Concomitant]
     Active Substance: NIACIN
  10. PREDNISONE [Concomitant]
     Active Substance: PREDNISONE

REACTIONS (3)
  - Colitis ulcerative [Recovering/Resolving]
  - Drug ineffective [Recovering/Resolving]
  - Constipation [Recovering/Resolving]
